FAERS Safety Report 4340354-8 (Version None)
Quarter: 2004Q2

REPORT INFORMATION
  Report Type: 
  Country: None (occurrence: None)
  Receive Date: 20040412
  Receipt Date: 20040325
  Transmission Date: 20050107
  Serious: Yes (Life-Threatening)
  Sender: FDA-Public Use
  Company Number: DSA_24168_2004

PATIENT
  Age: 55 Year
  Sex: Male

DRUGS (11)
  1. DILTIAZEM [Suspect]
     Dates: end: 20040124
  2. DEROXAT [Suspect]
     Indication: DEPRESSION
     Dosage: 30 MG Q DAY PO
     Route: 048
     Dates: start: 20031201, end: 20040124
  3. DEROXAT [Suspect]
     Indication: TOBACCO WITHDRAWAL SYMPTOMS
     Dosage: 30 MG Q DAY PO
     Route: 048
     Dates: start: 20031201, end: 20040124
  4. DEROXAT [Suspect]
     Indication: DEPRESSION
     Dosage: 20 MG Q DAY PO
     Route: 048
     Dates: start: 20031114, end: 20031130
  5. DEROXAT [Suspect]
     Indication: TOBACCO WITHDRAWAL SYMPTOMS
     Dosage: 20 MG Q DAY PO
     Route: 048
     Dates: start: 20031114, end: 20031130
  6. DEROXAT [Suspect]
     Indication: DEPRESSION
     Dosage: 10 MG Q DAY PO
     Route: 048
     Dates: start: 20030111
  7. DEROXAT [Suspect]
     Indication: TOBACCO WITHDRAWAL SYMPTOMS
     Dosage: 10 MG Q DAY PO
     Route: 048
     Dates: start: 20030111
  8. TRIATEC [Concomitant]
  9. CELECTOL [Concomitant]
  10. VASTEN [Concomitant]
  11. PLAVIX [Concomitant]

REACTIONS (1)
  - CARDIAC FAILURE [None]
